FAERS Safety Report 13359379 (Version 2)
Quarter: 2017Q1

REPORT INFORMATION
  Report Type: Spontaneous
  Country: US (occurrence: US)
  Receive Date: 20170322
  Receipt Date: 20170330
  Transmission Date: 20170429
  Serious: No
  Sender: FDA-Public Use
  Company Number: US-HORIZON-ACT-0053-2017

PATIENT
  Age: 18 Year
  Sex: Male

DRUGS (1)
  1. ACTIMMUNE [Suspect]
     Active Substance: INTERFERON GAMMA-1B
     Indication: CHRONIC GRANULOMATOUS DISEASE
     Dosage: 60 ?G TIW
     Dates: start: 20090603

REACTIONS (1)
  - Frustration tolerance decreased [Not Recovered/Not Resolved]
